FAERS Safety Report 8506119-8 (Version None)
Quarter: 2012Q3

REPORT INFORMATION
  Report Type: 
  Country: None (occurrence: None)
  Receive Date: 20120712
  Receipt Date: 20120703
  Transmission Date: 20120928
  Serious: Yes (Hospitalization)
  Sender: FDA-Public Use
  Company Number: DE-ALEXION-A201201105

PATIENT
  Sex: Female

DRUGS (13)
  1. SOLIRIS [Suspect]
     Dosage: 600 MG, UNK
     Route: 042
     Dates: start: 20120503
  2. RENAGEL [Concomitant]
     Indication: HYPERPHOSPHATAEMIA
     Dosage: 800 MG, 6/DAY
     Dates: start: 20120101
  3. SOLIRIS [Suspect]
     Indication: HAEMOLYTIC URAEMIC SYNDROME
     Dosage: 1200 MG
     Route: 042
     Dates: start: 20120318, end: 20120318
  4. SOLIRIS [Suspect]
     Dosage: 1200 MG
     Route: 042
     Dates: start: 20120320, end: 20120320
  5. RAMIPRIL [Concomitant]
     Indication: HYPERTENSION
     Dosage: 2.5 MG, QD
     Dates: start: 20120101
  6. NEORECORMON [Concomitant]
     Indication: ANAEMIA
     Dosage: 4000 IE, UNK
     Dates: start: 20120101
  7. DEKRISTOL [Concomitant]
     Indication: VITAMIN SUPPLEMENTATION
     Dosage: 20000 IE, UNK
     Dates: start: 20120101
  8. SOLIRIS [Suspect]
     Dosage: 1200 MG
     Route: 042
     Dates: start: 20120418, end: 20120418
  9. SOLIRIS [Suspect]
     Dosage: 1200 MG
     Route: 042
     Dates: start: 20120407, end: 20120407
  10. CARVEDILOL [Concomitant]
     Indication: HYPERTENSION
     Dosage: 25 MG, BID
     Dates: start: 20120101
  11. KEPPRA [Concomitant]
     Indication: CONVULSION
     Dosage: 500 MG, BID
     Dates: start: 20120101
  12. DREISAVIT [Concomitant]
     Indication: VITAMIN SUPPLEMENTATION
     Dosage: UNK
     Dates: start: 20120101
  13. CALCITRIOL [Concomitant]
     Indication: VITAMIN SUPPLEMENTATION
     Dosage: 0.25 ?G, QD
     Dates: start: 20120101

REACTIONS (2)
  - DEVICE RELATED SEPSIS [None]
  - KLEBSIELLA INFECTION [None]
